FAERS Safety Report 14070115 (Version 1)
Quarter: 2017Q4

REPORT INFORMATION
  Report Type: Spontaneous
  Country: US (occurrence: None)
  Receive Date: 20171010
  Receipt Date: 20171010
  Transmission Date: 20180321
  Serious: No
  Sender: FDA-Public Use
  Company Number: None

PATIENT

DRUGS (2)
  1. CELEBREX [Suspect]
     Active Substance: CELECOXIB
  2. CEREBYX [Suspect]
     Active Substance: FOSPHENYTOIN SODIUM

REACTIONS (3)
  - Drug prescribing error [None]
  - Product name confusion [None]
  - Wrong drug administered [None]
